FAERS Safety Report 18571889 (Version 3)
Quarter: 2024Q4

REPORT INFORMATION
  Report Type: Report from Study
  Country: US (occurrence: US)
  Receive Date: 20201202
  Receipt Date: 20241223
  Transmission Date: 20250115
  Serious: No
  Sender: AMGEN
  Company Number: US-CELGENE-USA-20200207376

PATIENT
  Sex: Male

DRUGS (2)
  1. OTEZLA [Suspect]
     Active Substance: APREMILAST
     Indication: Psoriasis
     Dosage: 60 MILLIGRAM, BID
     Route: 048
     Dates: start: 20190411
  2. TALTZ [Concomitant]
     Active Substance: IXEKIZUMAB
     Dosage: UNK

REACTIONS (1)
  - Drug ineffective [Unknown]
